FAERS Safety Report 24465096 (Version 1)
Quarter: 2024Q4

REPORT INFORMATION
  Report Type: Report from Study
  Country: US (occurrence: US)
  Receive Date: 20241018
  Receipt Date: 20241018
  Transmission Date: 20250114
  Serious: No
  Sender: ROCHE
  Company Number: US-ROCHE-3515427

PATIENT
  Age: 48 Year
  Sex: Female

DRUGS (10)
  1. XOLAIR [Suspect]
     Active Substance: OMALIZUMAB
     Indication: Urticaria
     Dosage: YES
     Route: 058
  2. XOLAIR [Suspect]
     Active Substance: OMALIZUMAB
     Indication: Urticaria
  3. XOLAIR [Suspect]
     Active Substance: OMALIZUMAB
     Indication: Chronic spontaneous urticaria
  4. EPIPEN [Concomitant]
     Active Substance: EPINEPHRINE
     Dosage: INJECT 0.3ML (0.3 MG) 07/04/2023
     Dates: start: 20230407
  5. PEPCID [Concomitant]
     Active Substance: FAMOTIDINE
     Dosage: 1 TAB BY MOUTH IN THE MORNING AT BED TIME
     Route: 048
     Dates: start: 20230313
  6. FERROUS SULFATE [Concomitant]
     Active Substance: FERROUS SULFATE
     Dosage: 325 (65 FE) MG? FREQUENCY TEXT:DAILY
     Route: 048
     Dates: start: 20220729
  7. ATARAX [Concomitant]
     Active Substance: HYDROXYZINE HYDROCHLORIDE
     Dosage: 1 TAB BY MOUTH IF NEEDED IN THE MORNING AT NOON AND AT BEDTIME
     Route: 048
     Dates: start: 20220802
  8. IBUPROFEN [Concomitant]
     Active Substance: IBUPROFEN
     Dosage: TAKE 1 TAB BY MOUTH EVERY 8 HOURS IF NEEDED WITH FOOD
     Route: 048
     Dates: start: 20230109
  9. SINGULAIR [Concomitant]
     Active Substance: MONTELUKAST SODIUM
     Dosage: 1 TAB BY MOUTH AT BED TIME
     Route: 048
  10. ASPIRIN [Concomitant]
     Active Substance: ASPIRIN
     Dosage: FREQUENCY TEXT:DAILY
     Route: 048

REACTIONS (2)
  - Off label use [Unknown]
  - No adverse event [Unknown]
